FAERS Safety Report 16025710 (Version 1)
Quarter: 2019Q1

REPORT INFORMATION
  Report Type: Spontaneous
  Country: DE (occurrence: DE)
  Receive Date: 20190302
  Receipt Date: 20190302
  Transmission Date: 20190418
  Serious: Yes (Other)
  Sender: FDA-Public Use
  Company Number: DE-ACCORD-110108

PATIENT
  Age: 33 Year
  Sex: Female
  Weight: 70 kg

DRUGS (16)
  1. FLUOROURACIL. [Suspect]
     Active Substance: FLUOROURACIL
     Indication: ADENOCARCINOMA OF COLON
     Dosage: 2800 (MG/M /INSGESAMT)/ FOLFOX
     Route: 041
     Dates: start: 20180403, end: 20180428
  2. MISOPROSTOL. [Concomitant]
     Active Substance: MISOPROSTOL
     Indication: ABORTION INDUCED
     Route: 048
     Dates: start: 20180430, end: 20180430
  3. PIPERACILLIN/TAZOBACTAM [Concomitant]
     Indication: INFECTION
     Route: 042
  4. FOLINIC ACID [Concomitant]
     Active Substance: LEUCOVORIN
     Indication: DRUG TOXICITY PROPHYLAXIS
     Route: 041
     Dates: start: 20180403, end: 20180428
  5. VANCOMYCIN [Concomitant]
     Active Substance: VANCOMYCIN
     Indication: INFECTION
     Route: 042
     Dates: start: 20180418, end: 20180426
  6. METRONIDAZOLE. [Concomitant]
     Active Substance: METRONIDAZOLE
     Indication: INFECTION
     Dosage: 1500  (MG/D )
     Route: 042
     Dates: start: 20180415, end: 20180418
  7. MACROGOL/MACROGOL STEARATE [Concomitant]
     Indication: CONSTIPATION
     Dosage: START AND END OF TREATMENT UNKNOWN
     Route: 048
     Dates: start: 20180428, end: 20180428
  8. VOMEX A [Concomitant]
     Active Substance: DIMENHYDRINATE
     Indication: NAUSEA
     Dosage: 150  (MG/D )
     Route: 048
  9. OXALIPLATIN. [Suspect]
     Active Substance: OXALIPLATIN
     Indication: ADENOCARCINOMA OF COLON
     Route: 041
     Dates: start: 20180403, end: 20180426
  10. CEFTRIAXONE. [Concomitant]
     Active Substance: CEFTRIAXONE
     Indication: INFECTION
     Dosage: 4000 ( MG/D )
     Route: 042
     Dates: start: 20180415, end: 20180418
  11. MEROPENEM. [Concomitant]
     Active Substance: MEROPENEM
     Indication: INFECTION
     Route: 042
     Dates: start: 20180418, end: 20180426
  12. INFLUENZA VACCINE/INFLUENZA VACCINE INACTIVATED [Concomitant]
     Indication: IMMUNISATION
     Route: 030
  13. CEFUROXIME. [Concomitant]
     Active Substance: CEFUROXIME
     Indication: INFECTION
     Dosage: 1000 (MG/D)
     Route: 048
     Dates: start: 20180405, end: 20180415
  14. FOLIC ACID. [Concomitant]
     Active Substance: FOLIC ACID
     Indication: PROPHYLAXIS OF NEURAL TUBE DEFECT
     Dosage: 0.8 (MG/D)/ START OF PROPHYLAXIS PROBABLY EARLIER
     Route: 048
     Dates: start: 20180401, end: 20180428
  15. SODIUM PICOSULFATE [Concomitant]
     Active Substance: SODIUM PICOSULFATE
     Indication: CONSTIPATION
     Dosage: START AND END OF TREATMENT UNKNOWN
     Route: 048
     Dates: start: 20180428, end: 20180428
  16. OXYCODONE/OXYCODONE HYDROCHLORIDE/OXYCODONE PECTINATE/OXYCODONE TEREPHTHALATE [Concomitant]
     Indication: CANCER PAIN
     Dosage: 15 (MG/D )/ START AND END OF TREATMENT UNKNOWN
     Route: 048
     Dates: start: 20180428, end: 20180428

REACTIONS (2)
  - Maternal exposure during pregnancy [Unknown]
  - Abortion spontaneous [Unknown]
